FAERS Safety Report 8781475 (Version 1)
Quarter: 2012Q4

REPORT INFORMATION
  Report Type: 
  Country: US (occurrence: US)
  Receive Date: 20120913
  Receipt Date: 20120913
  Transmission Date: 20130627
  Serious: No
  Sender: FDA-Public Use
  Company Number: US-B.I. PHARMACEUTICALS,INC./RIDGEFIELD-2012-BP-22121BP

PATIENT
  Sex: Female

DRUGS (3)
  1. TRADJENTA [Suspect]
     Indication: TYPE 2 DIABETES MELLITUS
     Dosage: 5 mg
     Route: 048
     Dates: start: 201208, end: 20120905
  2. AMARYL [Concomitant]
     Indication: DIABETES MELLITUS
  3. MEDICATION NOT FURTHER SPECIFIED [Concomitant]
     Indication: BLOOD PRESSURE

REACTIONS (1)
  - Urticaria [Unknown]
